FAERS Safety Report 8809579 (Version 4)
Quarter: 2013Q3

REPORT INFORMATION
  Report Type: Report from Study
  Country: JP (occurrence: JP)
  Receive Date: 20120926
  Receipt Date: 20130906
  Transmission Date: 20140515
  Serious: Yes (Hospitalization)
  Sender: FDA-Public Use
  Company Number: JP-VERTEX PHARMACEUTICAL INC.-AE-2012-008342

PATIENT
  Age: 66 Year
  Sex: Male

DRUGS (15)
  1. VX-950 (TELAPREVIR) [Suspect]
     Indication: CHRONIC HEPATITIS C
     Dosage: 2250 MG, QD
     Route: 048
     Dates: start: 20120411, end: 20120418
  2. VX-950 (TELAPREVIR) [Suspect]
     Dosage: 1500 MG, QD
     Route: 048
     Dates: start: 20120419, end: 20120503
  3. PEGINTRON [Suspect]
     Indication: CHRONIC HEPATITIS C
     Dosage: 1.5 ?G/KG,QW
     Route: 058
     Dates: start: 20120411, end: 20120425
  4. PEGINTRON [Suspect]
     Dosage: 1.5 ?G/KG, QW
     Route: 058
     Dates: start: 20120510, end: 20120516
  5. PEGINTRON [Suspect]
     Dosage: 1.1 ?G/KG, QW
     Route: 058
     Dates: start: 20120523, end: 20120523
  6. PEGINTRON [Suspect]
     Dosage: 1.5 ?G/KG, QW
     Route: 058
     Dates: start: 20120530
  7. RIBAVIRIN [Suspect]
     Indication: CHRONIC HEPATITIS C
     Dosage: 800 MG, QD
     Route: 048
     Dates: start: 20120411, end: 20120425
  8. RIBAVIRIN [Suspect]
     Dosage: 400 MG, QD
     Route: 048
     Dates: start: 20120426, end: 20120427
  9. RIBAVIRIN [Suspect]
     Dosage: 200 MG, QD
     Route: 048
     Dates: start: 20120428, end: 20120429
  10. RIBAVIRIN [Suspect]
     Dosage: 200 MG, QOD
     Route: 048
     Dates: start: 20120430, end: 20120502
  11. RIBAVIRIN [Suspect]
     Dosage: 200 MG, QD
     Route: 048
     Dates: start: 20120515, end: 20120612
  12. RIBAVIRIN [Suspect]
     Dosage: 300 MG, QD
     Route: 048
     Dates: start: 20120613, end: 20120621
  13. RIBAVIRIN [Suspect]
     Dosage: 333 MG, QD
     Route: 048
     Dates: start: 20120622, end: 20120802
  14. RIBAVIRIN [Suspect]
     Dosage: 200MG AND 400MG QOD
     Route: 048
     Dates: start: 20120803
  15. ALOSITOL [Concomitant]
     Dosage: 200 MG, QD
     Route: 048
     Dates: start: 20120418

REACTIONS (4)
  - Renal disorder [Recovered/Resolved]
  - Decreased appetite [Recovered/Resolved]
  - Anaemia [Not Recovered/Not Resolved]
  - Nausea [Recovered/Resolved]
